FAERS Safety Report 17814899 (Version 1)
Quarter: 2020Q2

REPORT INFORMATION
  Report Type: Spontaneous
  Country: CL (occurrence: CL)
  Receive Date: 20200522
  Receipt Date: 20200522
  Transmission Date: 20200714
  Serious: Yes (Other)
  Sender: FDA-Public Use
  Company Number: CL-US-PROVELL PHARMACEUTICALS LLC-9162178

PATIENT
  Sex: Female

DRUGS (1)
  1. EUTHYROX [Suspect]
     Active Substance: LEVOTHYROXINE SODIUM
     Indication: HYPOTHYROIDISM

REACTIONS (10)
  - Depression [Unknown]
  - Fatigue [Unknown]
  - Thyroid mass [Unknown]
  - Dyspnoea [Unknown]
  - Weight increased [Unknown]
  - Insulin resistance [Unknown]
  - Tachycardia [Unknown]
  - Alopecia [Unknown]
  - Asphyxia [Unknown]
  - Dry skin [Unknown]
